FAERS Safety Report 7311656-8 (Version None)
Quarter: 2011Q1

REPORT INFORMATION
  Report Type: 
  Country: None (occurrence: None)
  Receive Date: 20110224
  Receipt Date: 20110215
  Transmission Date: 20110831
  Serious: Yes (Hospitalization, Other)
  Sender: FDA-Public Use
  Company Number: JP-ASTRAZENECA-2010SE60603

PATIENT
  Age: 24154 Day
  Sex: Male
  Weight: 58 kg

DRUGS (5)
  1. SEROQUEL [Suspect]
     Dosage: 500 MG DAILY, THREE TIMES PER DAY
     Route: 048
     Dates: start: 20101110, end: 20101123
  2. TASMOLIN [Concomitant]
     Indication: EXTRAPYRAMIDAL DISORDER
     Route: 048
     Dates: start: 20101027
  3. SEROQUEL [Suspect]
     Indication: SCHIZOPHRENIA
     Route: 048
  4. SEROQUEL [Suspect]
     Dosage: 400 MG DAILY, THREE TIMES PER DAY
     Route: 048
     Dates: start: 20101124
  5. ROHYPNOL [Concomitant]
     Indication: INSOMNIA
     Route: 048
     Dates: start: 20100922

REACTIONS (2)
  - FALL [None]
  - ORTHOSTATIC HYPOTENSION [None]
